FAERS Safety Report 4816641-3 (Version None)
Quarter: 2005Q4

REPORT INFORMATION
  Report Type: 
  Country: None (occurrence: None)
  Receive Date: 20051028
  Receipt Date: 20051020
  Transmission Date: 20060501
  Serious: Yes (Death, Other)
  Sender: FDA-Public Use
  Company Number: 2005-BP-18634RO

PATIENT
  Age: 36 Year
  Sex: Female

DRUGS (26)
  1. METHOTREXATE [Suspect]
     Indication: BONE SARCOMA
     Dosage: SEE TEXT, IV
     Route: 042
  2. CISPLATIN [Suspect]
     Indication: BONE SARCOMA
  3. DOXORUBICIN HCL [Suspect]
     Dosage: SEE TEXT, IV
     Route: 042
  4. LEUCOVORIN CALCIUM [Concomitant]
  5. ONDANSETRON [Concomitant]
  6. LORAZEPAM [Concomitant]
  7. DEXAMETHASONE [Concomitant]
  8. ENOXAPRIN (ENOXAPRIN) [Concomitant]
  9. PANTOPRAZOLE SODIUM [Concomitant]
  10. SERTRALINE HCL [Concomitant]
  11. ZOLPIDEM TARTRATE [Concomitant]
  12. WARFARIN SODIUM [Concomitant]
  13. LORATADINE [Concomitant]
  14. PSEUDOEPHEDRINE HCL [Concomitant]
  15. ACYCLOVIR [Concomitant]
  16. LEVOFLOXACIN [Concomitant]
  17. MANNITOL [Concomitant]
  18. FUROSEMIDE [Concomitant]
  19. VANCOMYCIN [Concomitant]
  20. MULTIVIRAMIN (MULTIVIRAMINS0 [Concomitant]
  21. SCOPOLAMINE (HYOSCINE) [Concomitant]
  22. PEGFILGRASTIM (PEGFILGRASTIM) [Concomitant]
  23. ETHINYL ESTRADIOL/NORGESTREL (ETHINYL ESTRADIOL W/ NORGESTREL) [Concomitant]
  24. POTASSIUM CHLORIDE [Concomitant]
  25. MAGNESIUM SULFATE [Concomitant]
  26. ALPRAZOLAM [Concomitant]

REACTIONS (13)
  - ALANINE AMINOTRANSFERASE INCREASED [None]
  - ANXIETY [None]
  - ASPARTATE AMINOTRANSFERASE INCREASED [None]
  - BLOOD BILIRUBIN INCREASED [None]
  - CARDIOTOXICITY [None]
  - CHEST PAIN [None]
  - DRUG LEVEL ABOVE THERAPEUTIC [None]
  - INFUSION RELATED REACTION [None]
  - NODAL RHYTHM [None]
  - PYREXIA [None]
  - SINUS BRADYCARDIA [None]
  - VAGINAL HAEMORRHAGE [None]
  - VENTRICULAR TACHYCARDIA [None]
